FAERS Safety Report 4356850-3 (Version None)
Quarter: 2004Q2

REPORT INFORMATION
  Report Type: 
  Country: None (occurrence: None)
  Receive Date: 20040507
  Receipt Date: 20040414
  Transmission Date: 20050107
  Serious: Yes (Death)
  Sender: FDA-Public Use
  Company Number: JP_040402971

PATIENT
  Age: 47 Year
  Sex: Female
  Weight: 64 kg

DRUGS (16)
  1. ZYPREXA [Suspect]
     Indication: SCHIZOPHRENIA
     Dosage: 10 MG DAY
     Route: 048
     Dates: start: 20040406, end: 20040407
  2. HALOPERIDOL [Concomitant]
  3. NEULEPTIL (PERICIAZINE) [Concomitant]
  4. LEVOMEPROMAZINE [Concomitant]
  5. DEPAS (ETIZOLAM) [Concomitant]
  6. ROHIPNOL (FLUNITRAZEPAM) [Concomitant]
  7. LEVOTHYROXINE SODIUM [Concomitant]
  8. CALSLOT (MANIDIPINE HYDROCHLORIDE) [Concomitant]
  9. DIOVAN [Concomitant]
  10. LEXIN [Concomitant]
  11. ARTANE [Concomitant]
  12. FORSENID (SENNOSIDE A+B) [Concomitant]
  13. PAXIL [Concomitant]
  14. RHYTHMIL (RILMAZAFONE) [Concomitant]
  15. ZYRTEC [Concomitant]
  16. PRAVASTATIN SODIUM [Concomitant]

REACTIONS (5)
  - APNOEA [None]
  - BLOOD CREATININE INCREASED [None]
  - BLOOD UREA INCREASED [None]
  - MYDRIASIS [None]
  - REFUSAL OF TREATMENT BY PATIENT [None]
